FAERS Safety Report 11936792 (Version 1)
Quarter: 2016Q1

REPORT INFORMATION
  Report Type: Report from Study
  Country: DE (occurrence: DE)
  Receive Date: 20160121
  Receipt Date: 20160121
  Transmission Date: 20160526
  Serious: Yes (Death, Hospitalization, Other)
  Sender: FDA-Public Use
  Company Number: DE-CELGENE-062-50794-12080015

PATIENT
  Age: 77 Year
  Sex: Male
  Weight: 98.4 kg

DRUGS (12)
  1. RAMIPRIL. [Concomitant]
     Active Substance: RAMIPRIL
     Indication: HYPERTENSION
     Route: 065
  2. HCT [Concomitant]
     Active Substance: HYDROCHLOROTHIAZIDE
     Indication: HYPERTENSION
     Route: 065
  3. METFORMIN [Concomitant]
     Active Substance: METFORMIN HYDROCHLORIDE
     Indication: TYPE 2 DIABETES MELLITUS
     Route: 065
  4. NIFEDIPINE. [Concomitant]
     Active Substance: NIFEDIPINE
     Indication: PRODUCT USED FOR UNKNOWN INDICATION
     Route: 065
  5. SIMVASTATIN. [Concomitant]
     Active Substance: SIMVASTATIN
     Indication: HYPERCHOLESTEROLAEMIA
     Dosage: 95 MILLIGRAM
     Route: 065
  6. ISOPHANE INSULIN [Concomitant]
     Active Substance: INSULIN NOS
     Indication: TYPE 2 DIABETES MELLITUS
     Dosage: 40 DOSAGE FORMS
     Route: 065
  7. NITRENDIPINE [Concomitant]
     Active Substance: NITRENDIPINE
     Indication: HYPERTENSION
     Dosage: 40 DOSAGE FORMS
     Route: 065
  8. VIDAZA [Suspect]
     Active Substance: AZACITIDINE
     Indication: ACUTE MYELOID LEUKAEMIA
     Route: 058
     Dates: start: 20120612, end: 20120620
  9. VIDAZA [Suspect]
     Active Substance: AZACITIDINE
     Route: 058
     Dates: start: 20110709, end: 20120717
  10. METOHEXAL [Concomitant]
     Active Substance: METOPROLOL SUCCINATE
     Indication: AORTIC VALVE STENOSIS
     Dosage: 2000 MILLIGRAM
     Route: 065
  11. LEVOFLOXACIN. [Concomitant]
     Active Substance: LEVOFLOXACIN
     Indication: PROPHYLAXIS
     Dosage: 20 MILLIGRAM
     Route: 065
     Dates: start: 20120614
  12. TORASEMIDE [Concomitant]
     Active Substance: TORSEMIDE
     Indication: AORTIC VALVE STENOSIS
     Route: 065

REACTIONS (12)
  - Febrile neutropenia [Not Recovered/Not Resolved]
  - Erythema [Recovered/Resolved]
  - Pain [Recovered/Resolved]
  - Blood glucose abnormal [Recovered/Resolved]
  - Erythema [Recovered/Resolved]
  - Blood pressure increased [Recovered/Resolved]
  - Pyrexia [Not Recovered/Not Resolved]
  - Fatigue [Recovered/Resolved]
  - General physical health deterioration [Not Recovered/Not Resolved]
  - Fatigue [Recovered/Resolved]
  - Pneumonia [Fatal]
  - Epistaxis [Not Recovered/Not Resolved]

NARRATIVE: CASE EVENT DATE: 20120618
